FAERS Safety Report 11866643 (Version 1)
Quarter: 2015Q4

REPORT INFORMATION
  Report Type: Spontaneous
  Country: US (occurrence: US)
  Receive Date: 20151224
  Receipt Date: 20151224
  Transmission Date: 20160305
  Serious: Yes (Hospitalization, Other)
  Sender: FDA-Public Use
  Company Number: US-SHIRE-US-002674

PATIENT
  Age: 66 Year
  Sex: Female

DRUGS (3)
  1. LIPIDS NOS W/PROTEINS NOS/VITAMINS NOS [Concomitant]
     Indication: PARENTERAL NUTRITION
     Dosage: UNK
  2. GATTEX [Suspect]
     Active Substance: TEDUGLUTIDE\WATER
     Dosage: UNK
     Route: 058
     Dates: start: 20151007
  3. GATTEX [Suspect]
     Active Substance: TEDUGLUTIDE\WATER
     Indication: SHORT-BOWEL SYNDROME
     Dosage: UNK
     Route: 058
     Dates: start: 20130807, end: 20150928

REACTIONS (8)
  - Intestinal obstruction [Recovered/Resolved]
  - Bile duct stone [Recovered/Resolved]
  - Drug dose omission [Recovered/Resolved]
  - Overgrowth bacterial [Recovered/Resolved]
  - Abdominal pain [Recovered/Resolved]
  - Gastrointestinal stoma output decreased [Recovered/Resolved]
  - Nausea [Recovered/Resolved]
  - Vomiting [Recovered/Resolved]

NARRATIVE: CASE EVENT DATE: 20150928
